FAERS Safety Report 5352851-7 (Version None)
Quarter: 2007Q2

REPORT INFORMATION
  Report Type: 
  Country: None (occurrence: None)
  Receive Date: 20070611
  Receipt Date: 20070606
  Transmission Date: 20071010
  Serious: Yes (Other)
  Sender: FDA-Public Use
  Company Number: GB-ELI_LILLY_AND_COMPANY-GB200706001019

PATIENT
  Age: 50 Year
  Sex: Male
  Weight: 84 kg

DRUGS (5)
  1. ZYPREXA [Suspect]
     Indication: ABNORMAL BEHAVIOUR
     Dosage: 10 MG, UNKNOWN
     Route: 048
     Dates: start: 19980101, end: 20070413
  2. ASPIRIN [Concomitant]
     Indication: CARDIAC DISORDER
     Dosage: 75 MG, DAILY (1/D)
     Route: 065
     Dates: start: 19990101
  3. CARBAMAZEPINE [Concomitant]
     Indication: ABNORMAL BEHAVIOUR
     Dosage: 100 MG, 2/D
     Route: 048
     Dates: start: 19990101
  4. SOTALOL HYDROCHLORIDE [Concomitant]
     Indication: CARDIAC DISORDER
     Dosage: 40 MG, 2/D
     Route: 048
     Dates: start: 19990101
  5. VENLAFAXINE HCL [Concomitant]
     Indication: DEPRESSION
     Dosage: 75 MG, DAILY (1/D)
     Route: 048
     Dates: start: 19990101

REACTIONS (2)
  - LEUKOCYTOCLASTIC VASCULITIS [None]
  - NEUTROPENIA [None]
